FAERS Safety Report 9700641 (Version 2)
Quarter: 2013Q4

REPORT INFORMATION
  Report Type: Spontaneous
  Country: US (occurrence: US)
  Receive Date: 20131121
  Receipt Date: 20131209
  Transmission Date: 20140711
  Serious: Yes (Other)
  Sender: FDA-Public Use
  Company Number: PHEH2013US023846

PATIENT
  Sex: Female

DRUGS (7)
  1. DIOVAN [Suspect]
     Dosage: UNK UKN, UNK
  2. VALSARTAN [Suspect]
     Dosage: UNK UKN, UNK
  3. DIOVAN HCT [Suspect]
     Dosage: 1 DF (VALS 320MG, HCTZ 12.5MG) QD
  4. ASPIRIN [Concomitant]
     Dosage: 81 MG, BID
  5. CALCIUM [Concomitant]
     Dosage: 600 MG, QD
  6. VITAMIN D [Concomitant]
     Dosage: 400 MG, QD
  7. AMLODIPINE [Concomitant]
     Dosage: 5 MG, QD

REACTIONS (6)
  - Intracranial aneurysm [Unknown]
  - Headache [Unknown]
  - Cataract [Unknown]
  - Osteoarthritis [Unknown]
  - Blood pressure fluctuation [Unknown]
  - Fatigue [Unknown]
